FAERS Safety Report 19661465 (Version 1)
Quarter: 2021Q3

REPORT INFORMATION
  Report Type: Report from Study
  Country: None (occurrence: IT)
  Receive Date: 20210805
  Receipt Date: 20210805
  Transmission Date: 20211014
  Serious: Yes (Death)
  Sender: FDA-Public Use
  Company Number: IT-ABBVIE-21K-083-4024663-00

PATIENT
  Sex: Male

DRUGS (2)
  1. DUODOPA [Suspect]
     Active Substance: CARBIDOPA\LEVODOPA
  2. DUODOPA [Suspect]
     Active Substance: CARBIDOPA\LEVODOPA
     Indication: PARKINSON^S DISEASE
     Dosage: TOTAL DD (MG): 1450, MD: 7,5+3 CR: 4 (14H), ED: 4,5?20 MG/ML 5 MG/ML GEL
     Route: 050
     Dates: start: 20190408

REACTIONS (2)
  - Renal failure [Fatal]
  - General physical health deterioration [Fatal]
